FAERS Safety Report 23750672 (Version 9)
Quarter: 2025Q2

REPORT INFORMATION
  Report Type: Spontaneous
  Country: DE (occurrence: DE)
  Receive Date: 20240417
  Receipt Date: 20250616
  Transmission Date: 20250716
  Serious: Yes (Hospitalization, Other)
  Sender: NOVARTIS
  Company Number: DE-002147023-NVSC2023DE118195

PATIENT
  Sex: Female

DRUGS (4)
  1. GLIVEC [Suspect]
     Active Substance: IMATINIB MESYLATE
     Indication: Chronic myeloid leukaemia
     Dosage: 400 MG, QD (IN THE EVENING)
     Route: 065
     Dates: start: 2011
  2. GLIVEC [Suspect]
     Active Substance: IMATINIB MESYLATE
     Dosage: 400 MG, QD (IN THE EVENING)
     Route: 065
     Dates: end: 2020
  3. GLIVEC [Suspect]
     Active Substance: IMATINIB MESYLATE
     Route: 065
     Dates: start: 202409, end: 20241119
  4. Kalinor [Concomitant]
     Indication: Product used for unknown indication
     Route: 065

REACTIONS (16)
  - Tachycardia [Unknown]
  - Chronic myeloid leukaemia [Recovered/Resolved]
  - Philadelphia chromosome positive [Unknown]
  - Foreign body in throat [Unknown]
  - Abdominal discomfort [Unknown]
  - Mucosal dryness [Unknown]
  - Dysphagia [Unknown]
  - Palmar-plantar erythrodysaesthesia syndrome [Recovering/Resolving]
  - Pain in extremity [Recovering/Resolving]
  - Erythema [Recovering/Resolving]
  - Fluid retention [Recovering/Resolving]
  - Weight increased [Recovering/Resolving]
  - Electrolyte imbalance [Recovered/Resolved]
  - Rash [Not Recovered/Not Resolved]
  - Wrong technique in product usage process [Unknown]
  - Therapeutic response decreased [Unknown]

NARRATIVE: CASE EVENT DATE: 20240101
